FAERS Safety Report 15749526 (Version 1)
Quarter: 2018Q4

REPORT INFORMATION
  Report Type: Spontaneous
  Country: CA (occurrence: CA)
  Receive Date: 20181220
  Receipt Date: 20181220
  Transmission Date: 20190205
  Serious: No
  Sender: FDA-Public Use
  Company Number: None

PATIENT
  Age: 34 Year
  Sex: Female
  Weight: 56.25 kg

DRUGS (6)
  1. SIMUTRIPTAN [Concomitant]
  2. ALEVE [Concomitant]
     Active Substance: NAPROXEN SODIUM
  3. GRAVOL [Concomitant]
     Active Substance: DIMENHYDRINATE
  4. AIMOVIG [Suspect]
     Active Substance: ERENUMAB-AOOE
     Indication: MIGRAINE
     Dosage: ?          QUANTITY:1 INJECTION(S);?
     Route: 058
     Dates: start: 20181204, end: 20181204
  5. TYLENOL [Concomitant]
     Active Substance: ACETAMINOPHEN
  6. AIMOVIG [Concomitant]
     Active Substance: ERENUMAB-AOOE

REACTIONS (10)
  - Migraine [None]
  - Anxiety [None]
  - Arthropathy [None]
  - Therapy non-responder [None]
  - Myalgia [None]
  - Insomnia [None]
  - Hypoaesthesia oral [None]
  - Tension [None]
  - Feeling abnormal [None]
  - Pain [None]

NARRATIVE: CASE EVENT DATE: 20181207
